FAERS Safety Report 25487904 (Version 1)
Quarter: 2025Q2

REPORT INFORMATION
  Report Type: Report from Study
  Country: CA (occurrence: None)
  Receive Date: 20250627
  Receipt Date: 20250627
  Transmission Date: 20250717
  Serious: Yes (Other)
  Sender: ORION
  Company Number: CA-PFIZER INC-202300419109

PATIENT

DRUGS (2)
  1. METHOTREXATE [Suspect]
     Active Substance: METHOTREXATE
     Indication: Product used for unknown indication
  2. HULIO [Suspect]
     Active Substance: ADALIMUMAB-FKJP
     Indication: Rheumatoid arthritis
     Dosage: (CYCLICAL)

REACTIONS (3)
  - Haematological infection [Unknown]
  - Sepsis [Unknown]
  - Hypoacusis [Unknown]
